FAERS Safety Report 9253501 (Version 1)
Quarter: 2013Q2

REPORT INFORMATION
  Report Type: Spontaneous
  Country: US (occurrence: US)
  Receive Date: 20130425
  Receipt Date: 20130425
  Transmission Date: 20140414
  Serious: No
  Sender: FDA-Public Use
  Company Number: US-009507513-1304USA009887

PATIENT
  Age: 71 Year
  Sex: Female

DRUGS (2)
  1. AZASITE [Suspect]
     Indication: BLEPHARITIS
     Dosage: ONE DROP IN EACH EYE AT BEDTIME INDEFINITELY
     Route: 031
     Dates: start: 20130408, end: 20130415
  2. AZASITE [Suspect]
     Dosage: ONE DROP IN EACH EYE AT BEDTIME INDEFINITELY
     Route: 031
     Dates: start: 20130417

REACTIONS (4)
  - Drug dose omission [Unknown]
  - Product packaging quantity issue [Unknown]
  - Inappropriate schedule of drug administration [Unknown]
  - No adverse event [Unknown]
